FAERS Safety Report 6313325-X (Version None)
Quarter: 2009Q3

REPORT INFORMATION
  Report Type: 
  Country: None (occurrence: None)
  Receive Date: 20090818
  Receipt Date: 20090811
  Transmission Date: 20100115
  Serious: Yes (Hospitalization)
  Sender: FDA-Public Use
  Company Number: B0582994A

PATIENT
  Sex: Female

DRUGS (1)
  1. ELTROMBOPAG OLAMINE [Suspect]
     Indication: THROMBOCYTOPENIA
     Dosage: 37.5MG PER DAY
     Dates: start: 20090602, end: 20090615

REACTIONS (2)
  - PLEURAL EFFUSION [None]
  - PORTAL VEIN THROMBOSIS [None]
